FAERS Safety Report 9478058 (Version 2)
Quarter: 2013Q3

REPORT INFORMATION
  Report Type: Report from Study
  Country: HU (occurrence: HU)
  Receive Date: 20130827
  Receipt Date: 20130827
  Transmission Date: 20140515
  Serious: Yes (Death)
  Sender: FDA-Public Use
  Company Number: PHHO2011HU06591

PATIENT
  Age: 67 Year
  Sex: Male
  Weight: 96 kg

DRUGS (8)
  1. PLACEBO [Suspect]
     Indication: CORONARY ARTERY DISEASE
     Dosage: UNK
     Route: 048
     Dates: start: 20110112
  2. ALISKIREN [Suspect]
     Indication: CORONARY ARTERY DISEASE
     Dosage: 150 MG, UNK
  3. ASPIRIN PROTECT [Concomitant]
     Indication: MYOCARDIAL ISCHAEMIA
     Dosage: 100 MG, QD
     Route: 048
     Dates: start: 2006
  4. CLOPIDOGREL BISULFATE [Concomitant]
     Indication: MYOCARDIAL ISCHAEMIA
     Dosage: 75 MG, BID
     Route: 048
     Dates: start: 20101228
  5. SYNCUMAR [Concomitant]
     Indication: ATRIAL FIBRILLATION
     Dosage: 1 OR 2 MG, QD
     Route: 048
     Dates: start: 20100429
  6. CONCOR [Concomitant]
     Indication: HYPERTENSION
     Dosage: 5 MG, QD
     Route: 048
     Dates: start: 20101228
  7. PRENESSA [Concomitant]
     Indication: HYPERTENSION
     Dosage: 4/1.25 MG, QD
     Route: 048
     Dates: start: 2006
  8. INDAPAMIDE [Concomitant]
     Indication: HYPERTENSION
     Dosage: 4/1.25 MG, QD
     Route: 048
     Dates: start: 2006

REACTIONS (1)
  - Cardiac failure acute [Fatal]
